FAERS Safety Report 5210511-7 (Version None)
Quarter: 2007Q1

REPORT INFORMATION
  Report Type: 
  Country: None (occurrence: None)
  Receive Date: 20070117
  Receipt Date: 20070109
  Transmission Date: 20070707
  Serious: Yes (Other)
  Sender: FDA-Public Use
  Company Number: 2007AC00060

PATIENT
  Sex: Female

DRUGS (2)
  1. BUPIVACAINE [Suspect]
     Indication: ANALGESIC EFFECT
     Route: 008
  2. SUFENTANIL CITRATE [Suspect]
     Indication: ANALGESIC EFFECT
     Route: 008

REACTIONS (1)
  - FACIAL PARESIS [None]
